FAERS Safety Report 15237385 (Version 2)
Quarter: 2018Q4

REPORT INFORMATION
  Report Type: Spontaneous
  Country: US (occurrence: US)
  Receive Date: 20180803
  Receipt Date: 20181212
  Transmission Date: 20190204
  Serious: No
  Sender: FDA-Public Use
  Company Number: US-MYLANLABS-2018M1055309

PATIENT
  Age: 75 Year
  Sex: Female
  Weight: 66.67 kg

DRUGS (3)
  1. PEG-3350 AND ELECTROLYTES [Suspect]
     Active Substance: POLYETHYLENE GLYCOL 3350\POTASSIUM CHLORIDE\SODIUM BICARBONATE\SODIUM CHLORIDE\SODIUM SULFATE\SODIUM SULFATE ANHYDROUS
     Indication: COLONOSCOPY
     Dosage: UNK, QD (EVERY 15-20 MINUTES; CALLER DRANK A TOTAL OF 2L OUT OF THE 4L BOTTLE)
     Route: 048
     Dates: start: 20180711, end: 20180711
  2. METOPROLOL. [Concomitant]
     Active Substance: METOPROLOL
     Indication: BLOOD PRESSURE ABNORMAL
     Dosage: UNK
  3. ROSUVASTATIN. [Concomitant]
     Active Substance: ROSUVASTATIN
     Indication: PRODUCT USED FOR UNKNOWN INDICATION
     Dosage: UNK

REACTIONS (3)
  - Skin discolouration [Recovered/Resolved]
  - Peripheral coldness [Unknown]
  - Vasoconstriction [Unknown]

NARRATIVE: CASE EVENT DATE: 20180711
